FAERS Safety Report 25141322 (Version 1)
Quarter: 2025Q1

REPORT INFORMATION
  Report Type: Spontaneous
  Country: DE (occurrence: DE)
  Receive Date: 20250331
  Receipt Date: 20250331
  Transmission Date: 20250408
  Serious: Yes (Other)
  Sender: MYLAN
  Company Number: DE-002147023-NVSC2024DE184058

PATIENT
  Sex: Female

DRUGS (16)
  1. CYCLOSPORINE [Suspect]
     Active Substance: CYCLOSPORINE
     Indication: Still^s disease
     Dosage: Q2W (600 MG, Q2W (10MG/KG))
  2. CYCLOSPORINE [Suspect]
     Active Substance: CYCLOSPORINE
     Indication: Autoinflammatory disease
     Dosage: Q2W (600 MG, Q2W (10MG/KG))
     Route: 065
  3. CYCLOSPORINE [Suspect]
     Active Substance: CYCLOSPORINE
     Indication: Haemophagocytic lymphohistiocytosis
     Dosage: Q2W (600 MG, Q2W (10MG/KG))
     Route: 065
  4. CYCLOSPORINE [Suspect]
     Active Substance: CYCLOSPORINE
     Dosage: Q2W (600 MG, Q2W (10MG/KG))
  5. RUXOLITINIB [Suspect]
     Active Substance: RUXOLITINIB
     Indication: Still^s disease
  6. RUXOLITINIB [Suspect]
     Active Substance: RUXOLITINIB
     Route: 065
  7. RUXOLITINIB [Suspect]
     Active Substance: RUXOLITINIB
     Route: 065
  8. RUXOLITINIB [Suspect]
     Active Substance: RUXOLITINIB
  9. ETOPOSIDE [Suspect]
     Active Substance: ETOPOSIDE
     Indication: Still^s disease
  10. ETOPOSIDE [Suspect]
     Active Substance: ETOPOSIDE
     Route: 065
  11. ETOPOSIDE [Suspect]
     Active Substance: ETOPOSIDE
     Route: 065
  12. ETOPOSIDE [Suspect]
     Active Substance: ETOPOSIDE
  13. PREDNISOLONE [Concomitant]
     Active Substance: PREDNISOLONE
     Indication: Product used for unknown indication
  14. PREDNISOLONE [Concomitant]
     Active Substance: PREDNISOLONE
     Route: 065
  15. PREDNISOLONE [Concomitant]
     Active Substance: PREDNISOLONE
     Route: 065
  16. PREDNISOLONE [Concomitant]
     Active Substance: PREDNISOLONE

REACTIONS (3)
  - Still^s disease [Unknown]
  - Therapy non-responder [Unknown]
  - Off label use [Unknown]
